FAERS Safety Report 5234400-7 (Version None)
Quarter: 2007Q1

REPORT INFORMATION
  Report Type: 
  Country: None (occurrence: None)
  Receive Date: 20070207
  Receipt Date: 20070207
  Transmission Date: 20070707
  Serious: Yes (Death)
  Sender: FDA-Public Use
  Company Number: None

PATIENT
  Age: 82 Year
  Sex: Female
  Weight: 56 kg

DRUGS (3)
  1. FLUOXETINE [Suspect]
     Indication: DEPRESSION
     Dosage: PTA NOT KNOWN  NOT SURE
  2. ESCITALOPRAM [Suspect]
     Indication: DEPRESSION
     Dosage: PTA  NOT KNOWN  NOT SURE
  3. TRAMADOL HCL [Suspect]
     Indication: PAIN
     Dosage: PTA  NOT KNOWN

REACTIONS (2)
  - DYSPNOEA [None]
  - SEROTONIN SYNDROME [None]
